FAERS Safety Report 17092573 (Version 1)
Quarter: 2019Q4

REPORT INFORMATION
  Report Type: Report from Study
  Country: US (occurrence: US)
  Receive Date: 20191129
  Receipt Date: 20191129
  Transmission Date: 20200122
  Serious: No
  Sender: FDA-Public Use
  Company Number: US-BEH-2019109973

PATIENT
  Age: 64 Year
  Sex: Male

DRUGS (1)
  1. HIZENTRA [Suspect]
     Active Substance: HUMAN IMMUNOGLOBULIN G
     Dosage: UNK
     Route: 058
     Dates: start: 20191125

REACTIONS (2)
  - Administration site pain [Unknown]
  - Malabsorption from administration site [Unknown]
